FAERS Safety Report 21641542 (Version 3)
Quarter: 2023Q1

REPORT INFORMATION
  Report Type: Spontaneous
  Country: CZ (occurrence: CZ)
  Receive Date: 20221125
  Receipt Date: 20230126
  Transmission Date: 20230418
  Serious: Yes (Hospitalization, Other)
  Sender: FDA-Public Use
  Company Number: CZ-MYLANLABS-2022M1122989

PATIENT
  Age: 3 Year
  Sex: Male

DRUGS (10)
  1. AMLODIPINE [Suspect]
     Active Substance: AMLODIPINE BESYLATE
     Indication: Hypertension
     Dosage: 5 MILLIGRAM
     Route: 065
  2. DOXAZOSIN [Suspect]
     Active Substance: DOXAZOSIN MESYLATE
     Indication: Hypertension
     Dosage: 0.5 MILLIGRAM
     Route: 065
  3. DOXAZOSIN [Suspect]
     Active Substance: DOXAZOSIN MESYLATE
     Dosage: 1 MILLIGRAM
     Route: 065
  4. HYDROCHLOROTHIAZIDE [Suspect]
     Active Substance: HYDROCHLOROTHIAZIDE
     Indication: Hypertension
     Dosage: 25 MILLIGRAM
     Route: 065
  5. RAMIPRIL [Suspect]
     Active Substance: RAMIPRIL
     Indication: Hypertension
     Dosage: 3.75 MILLIGRAM
     Route: 065
  6. RAMIPRIL [Suspect]
     Active Substance: RAMIPRIL
     Dosage: 4 MILLIGRAM
     Route: 065
  7. MINOXIDIL [Suspect]
     Active Substance: MINOXIDIL
     Indication: Hypertension
     Dosage: 2.5 MILLIGRAM
     Route: 065
  8. MINOXIDIL [Suspect]
     Active Substance: MINOXIDIL
     Dosage: 3 MILLIGRAM
     Route: 065
  9. NIFEDIPINE [Suspect]
     Active Substance: NIFEDIPINE
     Indication: Hypertension
     Dosage: 5 MILLIGRAM
     Route: 065
  10. DOXAZOSIN MESYLATE [Concomitant]
     Active Substance: DOXAZOSIN MESYLATE
     Indication: Hypertension
     Dosage: 1 MILLIGRAM
     Route: 065

REACTIONS (3)
  - Blood pressure abnormal [Not Recovered/Not Resolved]
  - Hypertension [Recovered/Resolved with Sequelae]
  - Off label use [Unknown]
